FAERS Safety Report 26138248 (Version 1)
Quarter: 2025Q4

REPORT INFORMATION
  Report Type: Spontaneous
  Country: US (occurrence: US)
  Receive Date: 20251210
  Receipt Date: 20251210
  Transmission Date: 20260118
  Serious: Yes (Other)
  Sender: AUROBINDO
  Company Number: US-MLMSERVICE-20251121-PI721954-00138-1

PATIENT
  Age: 24 Year
  Sex: Male

DRUGS (3)
  1. PROGESTERONE [Suspect]
     Active Substance: PROGESTERONE
     Indication: Hormone therapy
     Dosage: 100 MILLIGRAM, ONCE A DAY (FOR 10 MONTHS)
     Route: 065
  2. ESTRADIOL [Suspect]
     Active Substance: ESTRADIOL
     Indication: Hormone therapy
     Dosage: UNK [(ORAL TABLETS FOR 3 YEARS, THEN SWITCHED TO INTRAMUSCULAR (IM) INJECTIONS 1 YEAR PRIOR TO PRESENTATION; AT THE VISIT, SHE WAS ON 8 MG IM WEEKLY)]
  3. ESTRADIOL [Suspect]
     Active Substance: ESTRADIOL
     Dosage: 8 MILLIGRAM, EVERY WEEK [(ORAL TABLETS FOR 3 YEARS, THEN SWITCHED TO INTRAMUSCULAR (IM) INJECTIONS 1 YEAR PRIOR TO PRESENTATION; AT THE VISIT, SHE WAS ON 8 MG IM WEEKLY)]

REACTIONS (1)
  - Phyllodes tumour [Unknown]
